FAERS Safety Report 18244099 (Version 1)
Quarter: 2020Q3

REPORT INFORMATION
  Report Type: Spontaneous
  Country: DK (occurrence: DK)
  Receive Date: 20200908
  Receipt Date: 20200908
  Transmission Date: 20201103
  Serious: Yes (Hospitalization)
  Sender: FDA-Public Use
  Company Number: DK-JNJFOC-20200849196

PATIENT
  Age: 63 Year
  Sex: Male

DRUGS (1)
  1. RIVAROXABAN [Suspect]
     Active Substance: RIVAROXABAN
     Indication: ATRIAL FIBRILLATION
     Dosage: STRENGTH: UNKNOWNDOSE: UNKNOWN
     Route: 048
     Dates: end: 20200707

REACTIONS (4)
  - Depressed level of consciousness [Unknown]
  - Aphasia [Unknown]
  - Cerebral haemorrhage [Unknown]
  - Hemiplegia [Unknown]

NARRATIVE: CASE EVENT DATE: 20200707
